FAERS Safety Report 23442424 (Version 1)
Quarter: 2024Q1

REPORT INFORMATION
  Report Type: Spontaneous
  Country: ZA (occurrence: ZA)
  Receive Date: 20240125
  Receipt Date: 20240125
  Transmission Date: 20240410
  Serious: Yes (Hospitalization)
  Sender: FDA-Public Use
  Company Number: ZA-ABBOTT-2024A-1376403

PATIENT
  Age: 27 Year
  Sex: Male

DRUGS (4)
  1. PANCREATIN [Suspect]
     Active Substance: PANCRELIPASE
     Indication: Cystic fibrosis
     Dosage: CREON 25000 (PANCREATIN) 300 MG TAKE FOUR CAPSULES THREE TIMES A DAY
     Route: 048
  2. RIVAROXABAN [Concomitant]
     Active Substance: RIVAROXABAN
     Indication: Anticoagulant therapy
     Dosage: IXAROLA (RIVAROXABAN) 15 MG TAKE ONE TABLET DAILY FOR 21 DAYS
     Route: 048
  3. RIVAROXABAN [Concomitant]
     Active Substance: RIVAROXABAN
     Indication: Anticoagulant therapy
     Dosage: IXAROLA (RIVAROXABAN) 20 MG TAKE ONE TABLET ONCE A DAY
     Route: 048
  4. BUDESONIDE\FORMOTEROL [Concomitant]
     Active Substance: BUDESONIDE\FORMOTEROL
     Indication: Chronic obstructive pulmonary disease
     Dosage: SYMBICORD 120 DOSE (BUDESONIDE) 60/4.5 ?MCG TAKE TWO PUFFS TWICE A DAY

REACTIONS (1)
  - Condition aggravated [Unknown]
